FAERS Safety Report 5214758-5 (Version None)
Quarter: 2006Q4

REPORT INFORMATION
  Report Type: 
  Country: None (occurrence: None)
  Receive Date: 20061113
  Receipt Date: 20060713
  Transmission Date: 20070319
  Serious: Yes (Hospitalization)
  Sender: FDA-Public Use
  Company Number: US-JNJFOC-20060702890

PATIENT
  Age: 47 Year
  Sex: Female

DRUGS (10)
  1. LEVAQUIN [Suspect]
     Indication: DRUG USE FOR UNKNOWN INDICATION
     Dosage: INTRAVENOUS
     Route: 042
     Dates: start: 20060301
  2. LEVAQUIN [Suspect]
     Indication: DRUG USE FOR UNKNOWN INDICATION
     Dosage: ORAL
     Route: 048
  3. WARFARIN SODIUM [Suspect]
     Indication: DEEP VEIN THROMBOSIS
     Dates: start: 19940101
  4. SYNTHROID [Concomitant]
  5. PROTONIX [Concomitant]
  6. DURAGESIC-100 [Concomitant]
  7. HYDROCODONE BITARTRATE [Concomitant]
  8. LORTAB [Concomitant]
  9. ADVAIR (SERETIDE MITE) [Concomitant]
  10. ALBUTEROL INHALER (SALBUTAMOL) [Concomitant]

REACTIONS (4)
  - ALOPECIA [None]
  - DRUG INTERACTION [None]
  - INTERNATIONAL NORMALISED RATIO DECREASED [None]
  - RASH [None]
